FAERS Safety Report 18188518 (Version 4)
Quarter: 2020Q3

REPORT INFORMATION
  Report Type: Spontaneous
  Country: HU (occurrence: HU)
  Receive Date: 20200824
  Receipt Date: 20200907
  Transmission Date: 20201103
  Serious: Yes (Other)
  Sender: FDA-Public Use
  Company Number: NVSC2020HU231444

PATIENT
  Age: 26 Year
  Sex: Female

DRUGS (1)
  1. CLARITHROMYCIN. [Suspect]
     Active Substance: CLARITHROMYCIN
     Indication: LUNG INFILTRATION
     Dosage: UNK
     Route: 065

REACTIONS (7)
  - Lung infiltration [Unknown]
  - Product use in unapproved indication [Unknown]
  - Disease progression [Unknown]
  - Condition aggravated [Unknown]
  - Haemophilus infection [Unknown]
  - Respiratory tract inflammation [Unknown]
  - Tuberculosis [Recovering/Resolving]
